FAERS Safety Report 13871810 (Version 4)
Quarter: 2018Q3

REPORT INFORMATION
  Report Type: Report from Study
  Country: None (occurrence: US)
  Receive Date: 20170816
  Receipt Date: 20180717
  Transmission Date: 20181010
  Serious: Yes (Hospitalization, Other)
  Sender: FDA-Public Use
  Company Number: US-ABBVIE-17K-163-2064237-00

PATIENT
  Sex: Female

DRUGS (1)
  1. HUMIRA [Suspect]
     Active Substance: ADALIMUMAB
     Indication: RHEUMATOID ARTHRITIS
     Route: 058

REACTIONS (16)
  - Cardiac failure congestive [Recovering/Resolving]
  - Dehydration [Recovering/Resolving]
  - Breath sounds abnormal [Unknown]
  - Chronic obstructive pulmonary disease [Recovering/Resolving]
  - Suffocation feeling [Unknown]
  - Pulmonary oedema [Unknown]
  - Cerebrovascular accident [Unknown]
  - Depression [Unknown]
  - Renal failure [Recovering/Resolving]
  - Pneumonia [Recovering/Resolving]
  - Vomiting [Unknown]
  - Irritable bowel syndrome [Unknown]
  - Nervousness [Unknown]
  - Blood potassium decreased [Recovering/Resolving]
  - Rheumatoid arthritis [Unknown]
  - Renal impairment [Recovering/Resolving]
